FAERS Safety Report 7794403-5 (Version None)
Quarter: 2011Q4

REPORT INFORMATION
  Report Type: 
  Country: None (occurrence: None)
  Receive Date: 20111004
  Receipt Date: 20111004
  Transmission Date: 20120403
  Serious: Yes (Hospitalization, Other)
  Sender: FDA-Public Use
  Company Number: None

PATIENT
  Sex: Male

DRUGS (1)
  1. ZYTIGA [Suspect]
     Dosage: 4 TABLETS -1000MG-
     Route: 048
     Dates: start: 20110726, end: 20110822

REACTIONS (2)
  - PAIN IN EXTREMITY [None]
  - URINARY TRACT INFECTION [None]
